FAERS Safety Report 25145832 (Version 1)
Quarter: 2025Q2

REPORT INFORMATION
  Report Type: Report from Study
  Country: US (occurrence: US)
  Receive Date: 20250401
  Receipt Date: 20250401
  Transmission Date: 20250716
  Serious: Yes (Other)
  Sender: ALEXION PHARMACEUTICALS
  Company Number: US-AstraZeneca-CH-00780330A

PATIENT
  Age: 73 Year

DRUGS (2)
  1. OLAPARIB [Suspect]
     Active Substance: OLAPARIB
     Dosage: 300 MILLIGRAM, BID
     Route: 065
  2. OLAPARIB [Suspect]
     Active Substance: OLAPARIB
     Dosage: 250 MILLIGRAM, BID
     Route: 065

REACTIONS (15)
  - Neuropathy peripheral [Unknown]
  - Drug ineffective [Recovering/Resolving]
  - Confusional state [Unknown]
  - Gait disturbance [Recovering/Resolving]
  - Asthenia [Unknown]
  - Fall [Unknown]
  - Back pain [Unknown]
  - Neutrophil percentage increased [Unknown]
  - Red cell distribution width increased [Unknown]
  - Blood glucose increased [Unknown]
  - Nausea [Recovered/Resolved]
  - Vomiting [Recovered/Resolved]
  - Hypoaesthesia [Unknown]
  - Anhedonia [Unknown]
  - Product use issue [Unknown]
